FAERS Safety Report 16446844 (Version 2)
Quarter: 2019Q2

REPORT INFORMATION
  Report Type: Spontaneous
  Country: US (occurrence: US)
  Receive Date: 20190618
  Receipt Date: 20190626
  Transmission Date: 20190711
  Serious: No
  Sender: FDA-Public Use
  Company Number: US-ACTELION-A-NJ2019-186163

PATIENT
  Sex: Male
  Weight: 112.02 kg

DRUGS (5)
  1. UPTRAVI [Suspect]
     Active Substance: SELEXIPAG
     Dosage: 1600 MCG, BID
     Route: 048
  2. OPSUMIT [Suspect]
     Active Substance: MACITENTAN
     Indication: PULMONARY ARTERIAL HYPERTENSION
     Dosage: 10 MG, QD
     Route: 048
  3. WARFARIN [Concomitant]
     Active Substance: WARFARIN
  4. SILDENAFIL CITRATE. [Concomitant]
     Active Substance: SILDENAFIL CITRATE
  5. UPTRAVI [Suspect]
     Active Substance: SELEXIPAG
     Indication: PULMONARY ARTERIAL HYPERTENSION
     Dosage: 800 MCG, QPM; 200 MCG QAM
     Route: 048

REACTIONS (9)
  - Asthenia [Unknown]
  - Presyncope [Unknown]
  - Dizziness [Unknown]
  - Malaise [Unknown]
  - Balance disorder [Unknown]
  - Abdominal pain [Unknown]
  - Hypotension [Unknown]
  - Oxygen saturation decreased [Unknown]
  - Unevaluable event [Unknown]
